FAERS Safety Report 11342337 (Version 1)
Quarter: 2015Q3

REPORT INFORMATION
  Report Type: Spontaneous
  Country: US (occurrence: US)
  Receive Date: 20150805
  Receipt Date: 20150805
  Transmission Date: 20151125
  Serious: No
  Sender: FDA-Public Use
  Company Number: US-BAUSCH-2014ST000077

PATIENT
  Age: 67 Year
  Sex: Female

DRUGS (1)
  1. GLUMETZA [Suspect]
     Active Substance: METFORMIN HYDROCHLORIDE
     Dosage: 1000 MG (TWO 500 MG TABLETS) WITH DINNER
     Route: 048

REACTIONS (2)
  - Headache [Unknown]
  - Vision blurred [Unknown]
